FAERS Safety Report 6384170-4 (Version None)
Quarter: 2009Q4

REPORT INFORMATION
  Report Type: 
  Country: None (occurrence: None)
  Receive Date: 20091001
  Receipt Date: 20090922
  Transmission Date: 20100525
  Serious: Yes (Life-Threatening, Hospitalization, Disabling)
  Sender: FDA-Public Use
  Company Number: A0762695A

PATIENT
  Sex: Male
  Weight: 200 kg

DRUGS (14)
  1. AVANDIA [Suspect]
     Dosage: 8MG PER DAY
     Route: 048
     Dates: start: 19991101
  2. COUMADIN [Suspect]
     Indication: PULMONARY EMBOLISM
     Dosage: 15MG PER DAY
     Route: 048
     Dates: start: 20010501
  3. DEPO-MEDROL [Concomitant]
  4. NORVASC [Concomitant]
  5. AMARYL [Concomitant]
  6. INSULIN [Concomitant]
  7. PAXIL [Concomitant]
  8. NORVASC [Concomitant]
  9. LIPITOR [Concomitant]
  10. INSULIN [Concomitant]
  11. TOPROL-XL [Concomitant]
  12. LOVENOX [Concomitant]
     Dates: start: 20010501
  13. DIOVAN [Concomitant]
     Dates: end: 20010501
  14. GLUCOPHAGE [Concomitant]
     Dates: end: 20010501

REACTIONS (14)
  - BEDRIDDEN [None]
  - CARDIAC FAILURE CONGESTIVE [None]
  - CHEST PAIN [None]
  - CHRONIC OBSTRUCTIVE PULMONARY DISEASE [None]
  - DYSPNOEA [None]
  - FLUID RETENTION [None]
  - GASTRIC HAEMORRHAGE [None]
  - ILL-DEFINED DISORDER [None]
  - INTESTINAL HAEMORRHAGE [None]
  - MOBILITY DECREASED [None]
  - PAIN IN EXTREMITY [None]
  - PULMONARY THROMBOSIS [None]
  - QUALITY OF LIFE DECREASED [None]
  - WEIGHT INCREASED [None]
